FAERS Safety Report 7919394-5 (Version None)
Quarter: 2011Q4

REPORT INFORMATION
  Report Type: 
  Country: None (occurrence: None)
  Receive Date: 20111115
  Receipt Date: 20111103
  Transmission Date: 20120403
  Serious: Yes (Hospitalization)
  Sender: FDA-Public Use
  Company Number: CA-006798

PATIENT
  Sex: Male

DRUGS (1)
  1. FIRMAGON [Suspect]
     Indication: PRODUCT USED FOR UNKNOWN INDICATION
     Dosage: (SUBCUTANEOUS)
     Route: 058
     Dates: start: 20110726, end: 20111012

REACTIONS (2)
  - DRUG INEFFECTIVE [None]
  - TRANSURETHRAL PROSTATECTOMY [None]
